FAERS Safety Report 5929614-4 (Version None)
Quarter: 2008Q3

REPORT INFORMATION
  Report Type: 
  Country: None (occurrence: None)
  Receive Date: 20080929
  Receipt Date: 20080609
  Transmission Date: 20090109
  Serious: Yes (Hospitalization)
  Sender: FDA-Public Use
  Company Number: PHEH2008US04919

PATIENT
  Age: 59 Year
  Sex: Female

DRUGS (8)
  1. TASIGNA [Suspect]
     Indication: CHRONIC MYELOID LEUKAEMIA
     Dosage: 400 MG, BID, ORAL : 400 MG, QD
     Route: 048
     Dates: start: 20080513, end: 20080526
  2. TASIGNA [Suspect]
     Indication: CHRONIC MYELOID LEUKAEMIA
     Dosage: 400 MG, BID, ORAL : 400 MG, QD
     Route: 048
     Dates: start: 20080527, end: 20080602
  3. ZOCOR [Concomitant]
  4. SYNTHROID [Concomitant]
  5. ATENOLOL [Concomitant]
  6. CALCITROL (CALCIUM CARBONATE, ERGOCALCIFEROL, RETINOL) [Concomitant]
  7. PROCRIT [Concomitant]
  8. AMBIEN [Concomitant]

REACTIONS (4)
  - CHRONIC MYELOID LEUKAEMIA [None]
  - ECCHYMOSIS [None]
  - LIVER FUNCTION TEST ABNORMAL [None]
  - PLATELET FUNCTION TEST ABNORMAL [None]
